FAERS Safety Report 15077444 (Version 1)
Quarter: 2018Q2

REPORT INFORMATION
  Report Type: Spontaneous
  Country: US (occurrence: US)
  Receive Date: 20180627
  Receipt Date: 20180627
  Transmission Date: 20180711
  Serious: Yes (Death, Hospitalization, Other)
  Sender: FDA-Public Use
  Company Number: US-BAYER-2018-117301

PATIENT
  Age: 44 Year
  Sex: Male
  Weight: 46.98 kg

DRUGS (11)
  1. MOXIFLOXACIN IV [Suspect]
     Active Substance: MOXIFLOXACIN
     Indication: TUBERCULOSIS
     Dosage: 400 MG, QD
     Route: 048
     Dates: start: 20180321, end: 20180323
  2. CLOFAZIMINE [Suspect]
     Active Substance: CLOFAZIMINE
     Indication: TUBERCULOSIS
     Dosage: 100 MG, QD
     Route: 048
     Dates: start: 20180317, end: 20180323
  3. TENOFOVIR [Concomitant]
     Active Substance: TENOFOVIR
     Dosage: UNK
     Dates: start: 20160419
  4. PYRAZINAMIDE. [Suspect]
     Active Substance: PYRAZINAMIDE
     Indication: TUBERCULOSIS
     Dosage: 200 MG, QD
     Route: 048
     Dates: start: 20180317, end: 20180323
  5. SULFAMETHOXAZOLE [Concomitant]
     Active Substance: SULFAMETHOXAZOLE
     Dosage: UNK
     Dates: start: 20160419
  6. PROTHIONAMIDE [Suspect]
     Active Substance: PROTIONAMIDE
     Indication: TUBERCULOSIS
     Dosage: 500 MG, QD
     Route: 048
     Dates: start: 20180317, end: 20180323
  7. AMINOSALICYLIC ACID [Suspect]
     Active Substance: AMINOSALICYLIC ACID
     Indication: TUBERCULOSIS
     Dosage: 8 G, QD
     Route: 048
     Dates: start: 20180321, end: 20180410
  8. LAMIVUDINE. [Concomitant]
     Active Substance: LAMIVUDINE
     Dosage: UNK
     Dates: start: 20160419
  9. EFAVIRENZ. [Concomitant]
     Active Substance: EFAVIRENZ
     Dosage: UNK
     Dates: start: 20160419
  10. PYRAZINAMIDE. [Suspect]
     Active Substance: PYRAZINAMIDE
     Indication: TUBERCULOSIS
     Dosage: 1200 MG, QD
     Route: 048
     Dates: start: 20180321, end: 20180323
  11. ABACAVIR. [Concomitant]
     Active Substance: ABACAVIR

REACTIONS (9)
  - Pancytopenia [None]
  - Confusional state [None]
  - Vomiting [None]
  - Progressive multifocal leukoencephalopathy [Fatal]
  - Infection [None]
  - Respiratory failure [None]
  - Renal injury [None]
  - General physical health deterioration [None]
  - Abdominal distension [None]
